FAERS Safety Report 11767634 (Version 5)
Quarter: 2016Q3

REPORT INFORMATION
  Report Type: Report from Study
  Country: AU (occurrence: AU)
  Receive Date: 20151123
  Receipt Date: 20160729
  Transmission Date: 20161109
  Serious: Yes (Hospitalization)
  Sender: FDA-Public Use
  Company Number: PHHO2015AU016321

PATIENT
  Age: 84 Year
  Sex: Female
  Weight: 54 kg

DRUGS (41)
  1. AUGMENTIN DUO FORTE [Concomitant]
     Active Substance: AMOXICILLIN\CLAVULANATE POTASSIUM
     Dosage: 875 BID
     Route: 048
     Dates: start: 20130408, end: 20130418
  2. CIPROFLOXACIN. [Concomitant]
     Active Substance: CIPROFLOXACIN
     Indication: BRONCHIECTASIS
     Dosage: 500 BID
     Route: 048
     Dates: start: 20130408, end: 20130415
  3. PANADOL [Concomitant]
     Active Substance: ACETAMINOPHEN
     Indication: PAIN
     Dosage: UNK (2)
     Route: 048
     Dates: start: 20140729, end: 20140729
  4. FRUSEMIDE [Concomitant]
     Active Substance: FUROSEMIDE
     Indication: FLUID IMBALANCE
     Dosage: UNK (40 PRN)
     Route: 042
     Dates: start: 20141212, end: 20141212
  5. BRICANYL [Concomitant]
     Active Substance: TERBUTALINE SULFATE
     Indication: ASTHMA
     Dosage: UNK (2)
     Route: 055
     Dates: start: 20150428, end: 20150428
  6. CLEXANE [Concomitant]
     Active Substance: ENOXAPARIN SODIUM
     Indication: ANTICOAGULANT THERAPY
     Dosage: 40 PRN
     Route: 058
     Dates: start: 20141201, end: 20141214
  7. ROXITHROMYCIN [Concomitant]
     Active Substance: ROXITHROMYCIN
     Indication: COUGH
     Dosage: 300 QD
     Route: 048
     Dates: start: 20140327, end: 20140401
  8. AUGMENTIN DUO FORTE [Concomitant]
     Active Substance: AMOXICILLIN\CLAVULANATE POTASSIUM
     Indication: COUGH
     Dosage: 875 BID
     Route: 048
     Dates: start: 20130301, end: 20130301
  9. MOXONIDINE [Concomitant]
     Active Substance: MOXONIDINE
     Indication: HYPERTENSION
     Dosage: 400 QD
     Route: 048
     Dates: start: 20140818
  10. MAXOLON [Concomitant]
     Active Substance: METOCLOPRAMIDE HYDROCHLORIDE
     Indication: NAUSEA
     Dosage: UNK (10 PRN)
     Route: 048
     Dates: start: 20141212, end: 20141212
  11. FUROSEMIDE. [Concomitant]
     Active Substance: FUROSEMIDE
     Indication: FLUID RETENTION
     Dosage: 40 QD
     Route: 048
     Dates: start: 20150427, end: 20150429
  12. FUROSEMIDE. [Concomitant]
     Active Substance: FUROSEMIDE
     Dosage: 40 BID
     Route: 048
     Dates: start: 20150430
  13. OMEPRAZOLE. [Concomitant]
     Active Substance: OMEPRAZOLE
     Indication: GASTROOESOPHAGEAL REFLUX DISEASE
     Dosage: 20 QD
     Route: 048
     Dates: start: 20121112
  14. AUGMENTIN DUO FORTE [Concomitant]
     Active Substance: AMOXICILLIN\CLAVULANATE POTASSIUM
     Dosage: 875 BID
     Route: 048
     Dates: start: 20140327, end: 20140401
  15. ZANIDIP [Concomitant]
     Active Substance: LERCANIDIPINE HYDROCHLORIDE
     Dosage: 10 BID
     Route: 048
     Dates: start: 20140724, end: 20140730
  16. HYDRALAZINE [Concomitant]
     Active Substance: HYDRALAZINE HYDROCHLORIDE
     Indication: HYPERTENSION
     Dosage: UNK (25 Q3D)
     Route: 065
     Dates: start: 20141207
  17. TEMAZEPAM. [Concomitant]
     Active Substance: TEMAZEPAM
     Indication: INSOMNIA
     Dosage: UNK (10)
     Dates: start: 20150504, end: 20150504
  18. MAGNESIUM ASPARTATE [Concomitant]
     Active Substance: MAGNESIUM ASPARTATE
     Dosage: 37.4 Q3D
     Route: 048
     Dates: start: 20150101
  19. PANADOL [Concomitant]
     Active Substance: ACETAMINOPHEN
     Indication: PAIN
     Dosage: 665 PRN
     Route: 048
     Dates: start: 20121106
  20. VERAPAMIL [Concomitant]
     Active Substance: VERAPAMIL HYDROCHLORIDE
     Indication: HYPERTENSION
     Dosage: 180 QD
     Route: 048
     Dates: start: 20140101, end: 20140428
  21. VOLTAREN [Concomitant]
     Active Substance: DICLOFENAC SODIUM
     Indication: ARTHRALGIA
     Dosage: UNK (1 PRN)
     Route: 061
     Dates: start: 20130502, end: 20131001
  22. METOCLOPRAMIDE. [Concomitant]
     Active Substance: METOCLOPRAMIDE
     Indication: VOMITING
     Dosage: UNK (70)
     Route: 042
     Dates: start: 20140724, end: 20140724
  23. METOCLOPRAMIDE. [Concomitant]
     Active Substance: METOCLOPRAMIDE
     Dosage: UNK (70)
     Route: 042
     Dates: start: 20140724, end: 20140724
  24. ZANIDIP [Concomitant]
     Active Substance: LERCANIDIPINE HYDROCHLORIDE
     Indication: HYPERTENSION
     Dosage: 10 QD
     Route: 048
     Dates: start: 20140724
  25. GLYCERYL TRINITRATE [Concomitant]
     Active Substance: NITROGLYCERIN
     Indication: HYPERTENSION
     Dosage: UNK (50 PRN)
     Route: 061
     Dates: start: 20141201, end: 20141212
  26. IRBESARTAN. [Concomitant]
     Active Substance: IRBESARTAN
     Indication: HYPERTENSION
     Dosage: 300 QD
     Route: 048
     Dates: start: 20140101
  27. PAZOPANIB [Suspect]
     Active Substance: PAZOPANIB
     Indication: METASTATIC RENAL CELL CARCINOMA
     Dosage: 400 MG (TABLETS)
     Route: 048
     Dates: start: 20121015, end: 20150426
  28. MAGNESIUM ASPARTATE [Concomitant]
     Active Substance: MAGNESIUM ASPARTATE
     Indication: MUSCLE SPASMS
     Dosage: 500 QD
     Route: 048
     Dates: start: 20121106, end: 20150101
  29. VALIUM [Concomitant]
     Active Substance: DIAZEPAM
     Indication: MUSCLE RELAXANT THERAPY
     Dosage: UNK (2 PRN)
     Route: 048
     Dates: start: 20130523, end: 20131001
  30. CEPHALEXIN. [Concomitant]
     Active Substance: CEPHALEXIN
     Indication: COUGH
     Dosage: 500 BID
     Route: 048
     Dates: start: 20131030, end: 20131105
  31. TWYNSTA [Concomitant]
     Active Substance: AMLODIPINE BESYLATE\TELMISARTAN
     Indication: HYPERTENSION
     Dosage: UNK (QD)
     Route: 048
     Dates: start: 20141204, end: 20150101
  32. AUGMENTIN DUO FORTE [Concomitant]
     Active Substance: AMOXICILLIN\CLAVULANATE POTASSIUM
     Dosage: 875 BID
     Route: 048
     Dates: start: 20130718, end: 20130728
  33. PREDNISONE. [Concomitant]
     Active Substance: PREDNISONE
     Indication: ASTHMA
     Dosage: UNK (10 QD)
     Route: 048
     Dates: start: 20150301, end: 20150301
  34. COLOXYL WITH SENNA [Concomitant]
     Active Substance: DOCUSATE\SENNOSIDES
     Indication: CONSTIPATION
     Dosage: UNK (2)
     Route: 048
     Dates: start: 20150504, end: 20150504
  35. ASPIRIN. [Concomitant]
     Active Substance: ASPIRIN
     Indication: HYPERTENSION
     Dosage: 100 QD
     Route: 048
     Dates: start: 20150428, end: 20150505
  36. PARACETAMOL [Concomitant]
     Active Substance: ACETAMINOPHEN
     Indication: PAIN
     Dosage: UNK (1 PRN)
     Route: 048
     Dates: start: 20150427, end: 20150505
  37. AUGMENTIN DUO FORTE [Concomitant]
     Active Substance: AMOXICILLIN\CLAVULANATE POTASSIUM
     Dosage: 875 PRN
     Route: 048
     Dates: start: 20130901, end: 20130901
  38. MOBIC [Concomitant]
     Active Substance: MELOXICAM
     Indication: PAIN
     Dosage: 7.5 QD
     Route: 048
     Dates: start: 20130523, end: 20140101
  39. MOVICOL [Concomitant]
     Active Substance: POLYETHYLENE GLYCOL 3350\POTASSIUM CHLORIDE\SODIUM BICARBONATE\SODIUM CHLORIDE
     Indication: CONSTIPATION
     Dosage: UNK (1 BID)
     Route: 048
     Dates: start: 20140724, end: 20140728
  40. MOVICOL [Concomitant]
     Active Substance: POLYETHYLENE GLYCOL 3350\POTASSIUM CHLORIDE\SODIUM BICARBONATE\SODIUM CHLORIDE
     Dosage: UNK (1 PRN)
     Route: 048
     Dates: start: 20150428, end: 20150505
  41. TIOTROPIUM [Concomitant]
     Active Substance: TIOTROPIUM
     Indication: ASTHMA
     Dosage: 18 QD
     Route: 055
     Dates: start: 20150101

REACTIONS (2)
  - Asthma [Recovered/Resolved]
  - Cardiac failure congestive [Recovered/Resolved]

NARRATIVE: CASE EVENT DATE: 20140901
